FAERS Safety Report 7069578-6 (Version None)
Quarter: 2010Q4

REPORT INFORMATION
  Report Type: 
  Country: None (occurrence: None)
  Receive Date: 20101028
  Receipt Date: 20100709
  Transmission Date: 20110411
  Serious: No
  Sender: FDA-Public Use
  Company Number: US-WYE-H14155610

PATIENT
  Age: 31 Year
  Sex: Male
  Weight: 79.45 kg

DRUGS (2)
  1. ADVIL [Suspect]
     Indication: GINGIVAL SWELLING
     Dosage: 3 TABLETS EVERY 8 HOURS AS RECOMMENDED BY HEALTH CARE PROVIDER
     Route: 048
     Dates: start: 20100301, end: 20100314
  2. ADVIL [Suspect]
     Indication: TOOTHACHE
     Dosage: 2 TABLETS EVERY 4 TO 6 HOURS
     Route: 048
     Dates: start: 20100315

REACTIONS (2)
  - DRUG INEFFECTIVE [None]
  - OVERDOSE [None]
